FAERS Safety Report 9706676 (Version 2)
Quarter: 2013Q4

REPORT INFORMATION
  Report Type: Spontaneous
  Country: PT (occurrence: PT)
  Receive Date: 20131125
  Receipt Date: 20131223
  Transmission Date: 20140711
  Serious: Yes (Other)
  Sender: FDA-Public Use
  Company Number: PT-ROCHE-1307338

PATIENT
  Age: 60 Year
  Sex: Female

DRUGS (6)
  1. HERCEPTIN [Suspect]
     Indication: BREAST CANCER
     Route: 065
  2. HERCEPTIN [Suspect]
     Indication: METASTASES TO LIVER
  3. HERCEPTIN [Suspect]
     Indication: METASTASES TO LUNG
  4. XELODA [Suspect]
     Indication: BREAST CANCER
     Route: 065
  5. XELODA [Suspect]
     Indication: METASTASES TO LUNG
  6. XELODA [Suspect]
     Indication: METASTASES TO LIVER

REACTIONS (1)
  - Ulcerative keratitis [Recovering/Resolving]
